FAERS Safety Report 18694261 (Version 1)
Quarter: 2021Q1

REPORT INFORMATION
  Report Type: Spontaneous
  Country: NL (occurrence: NL)
  Receive Date: 20210104
  Receipt Date: 20210104
  Transmission Date: 20210419
  Serious: Yes (Other)
  Sender: FDA-Public Use
  Company Number: NVSC2020NL342057

PATIENT
  Sex: Female

DRUGS (1)
  1. NILOTINIB [Suspect]
     Active Substance: NILOTINIB
     Indication: PRODUCT USED FOR UNKNOWN INDICATION
     Dosage: UNK
     Route: 065
     Dates: start: 2010, end: 2015

REACTIONS (6)
  - Atrial fibrillation [Unknown]
  - Basedow^s disease [Unknown]
  - Hyperthyroidism [Unknown]
  - Arterial insufficiency [Unknown]
  - Peripheral vascular disorder [Unknown]
  - Hypertension [Unknown]

NARRATIVE: CASE EVENT DATE: 2013
